FAERS Safety Report 14674797 (Version 1)
Quarter: 2018Q1

REPORT INFORMATION
  Report Type: Spontaneous
  Country: US (occurrence: US)
  Receive Date: 20180323
  Receipt Date: 20180323
  Transmission Date: 20180509
  Serious: Yes (Other)
  Sender: FDA-Public Use
  Company Number: None

PATIENT
  Age: 40 Year
  Sex: Female
  Weight: 69.75 kg

DRUGS (2)
  1. EFFEXOR XR [Concomitant]
     Active Substance: VENLAFAXINE HYDROCHLORIDE
  2. ARMODAFINIL. [Suspect]
     Active Substance: ARMODAFINIL
     Indication: SOMNOLENCE
     Dosage: ?          QUANTITY:1 TABLET(S);?
     Route: 048
     Dates: start: 20180315, end: 20180318

REACTIONS (14)
  - Product substitution issue [None]
  - Cognitive disorder [None]
  - Asthenia [None]
  - Loss of personal independence in daily activities [None]
  - Gait disturbance [None]
  - Presyncope [None]
  - Blood pressure increased [None]
  - Hypersomnia [None]
  - Dizziness [None]
  - Coordination abnormal [None]
  - Poor quality sleep [None]
  - Decreased activity [None]
  - Vision blurred [None]
  - Dissociation [None]

NARRATIVE: CASE EVENT DATE: 20180318
